FAERS Safety Report 6066423-2 (Version None)
Quarter: 2009Q1

REPORT INFORMATION
  Report Type: 
  Country: None (occurrence: None)
  Receive Date: 20090205
  Receipt Date: 20090129
  Transmission Date: 20090719
  Serious: Yes (Hospitalization)
  Sender: FDA-Public Use
  Company Number: CA-AMGEN-QUU331029

PATIENT
  Age: 25 Year
  Sex: Female
  Weight: 72 kg

DRUGS (13)
  1. NEULASTA [Suspect]
     Indication: CHEMOTHERAPY
     Route: 058
     Dates: start: 20090121
  2. CYCLOPHOSPHAMIDE [Suspect]
     Dates: start: 20090117
  3. DOXORUBICIN HYDROCHLORIDE [Suspect]
     Dates: start: 20090117
  4. VINCRISTINE [Suspect]
     Dates: start: 20090117
  5. PREDNISONE [Suspect]
     Dates: start: 20090117
  6. RITUXIMAB [Suspect]
     Dates: start: 20090120
  7. METHOTREXATE [Concomitant]
     Route: 037
     Dates: start: 20090121, end: 20090121
  8. ALLOPURINOL [Concomitant]
     Dates: start: 20090126, end: 20090131
  9. LANSOPRAZOLE [Concomitant]
     Dates: start: 20090126, end: 20090131
  10. OXYCONTIN [Concomitant]
     Dates: start: 20090126, end: 20090131
  11. NABILONE [Concomitant]
     Dates: start: 20090126, end: 20090130
  12. COLACE [Concomitant]
     Dates: start: 20090126, end: 20090130
  13. LACTULOSE [Concomitant]
     Dates: start: 20090126, end: 20090130

REACTIONS (3)
  - LEUKOPENIA [None]
  - NEUTROPENIA [None]
  - VOMITING [None]
